FAERS Safety Report 9012718 (Version 5)
Quarter: 2014Q2

REPORT INFORMATION
  Report Type: Spontaneous
  Country: US (occurrence: US)
  Receive Date: 20130114
  Receipt Date: 20140523
  Transmission Date: 20141212
  Serious: Yes (Hospitalization)
  Sender: FDA-Public Use
  Company Number: US-B.I. PHARMACEUTICALS,INC./RIDGEFIELD-2013-BI-00476BP

PATIENT
  Sex: Female
  Weight: 83.91 kg

DRUGS (11)
  1. PRADAXA [Suspect]
     Indication: ANTICOAGULANT THERAPY
     Dosage: 300 MG
     Route: 048
     Dates: start: 20111204, end: 20120924
  2. PRADAXA [Suspect]
     Indication: ATRIAL FIBRILLATION
  3. BENICAR [Concomitant]
     Dosage: 20 MG
     Route: 048
  4. COMBIGAN [Concomitant]
     Route: 065
  5. LASIX [Concomitant]
     Dosage: 40 MG
     Route: 048
  6. LUMIGAN [Concomitant]
     Route: 065
  7. ALLOPURINOL [Concomitant]
     Dosage: 100 MG
     Route: 048
  8. AMIODARONE [Concomitant]
     Dosage: 400 MG
     Route: 048
  9. LEVOTHYROXINE [Concomitant]
     Dosage: 150 MCG
     Route: 048
  10. LISINOPRIL [Concomitant]
     Dosage: 80 MG
     Route: 048
  11. DILTIAZEM [Concomitant]
     Dosage: 100 MG
     Route: 048

REACTIONS (3)
  - Haemorrhage [Unknown]
  - Hypochromic anaemia [Unknown]
  - Renal failure acute [Unknown]
